FAERS Safety Report 13840271 (Version 2)
Quarter: 2017Q3

REPORT INFORMATION
  Report Type: Report from Study
  Country: US (occurrence: BR)
  Receive Date: 20170807
  Receipt Date: 20170906
  Transmission Date: 20171127
  Serious: Yes (Death, Other)
  Sender: FDA-Public Use
  Company Number: US-SUNOVION-2017SUN003389

PATIENT
  Sex: Male
  Weight: 55 kg

DRUGS (1)
  1. GLYCOPYRROLATE. [Suspect]
     Active Substance: GLYCOPYRROLATE
     Indication: EMPHYSEMA
     Dosage: UNK, QD
     Route: 065
     Dates: start: 2016

REACTIONS (6)
  - Forced expiratory volume decreased [Unknown]
  - Depression [Unknown]
  - Diabetes mellitus [Unknown]
  - Cardiac disorder [Fatal]
  - Emphysema [Unknown]
  - Dementia Alzheimer^s type [Unknown]
